FAERS Safety Report 8713596 (Version 2)
Quarter: 2013Q1

REPORT INFORMATION
  Report Type: Spontaneous
  Country: US (occurrence: US)
  Receive Date: 20120808
  Receipt Date: 20130105
  Transmission Date: 20140127
  Serious: Yes (Other)
  Sender: FDA-Public Use
  Company Number: US-JNJFOC-20120701858

PATIENT
  Sex: Female

DRUGS (8)
  1. TOPAMAX [Suspect]
     Indication: CONVULSION
     Route: 048
     Dates: start: 200604, end: 201111
  2. TOPAMAX [Suspect]
     Indication: MIGRAINE
     Route: 048
     Dates: start: 200604, end: 201111
  3. TYLENOL [Suspect]
     Route: 065
  4. TYLENOL [Suspect]
     Indication: HEADACHE
     Route: 065
  5. HYDROCODONE [Suspect]
     Indication: MIGRAINE
     Route: 065
  6. AMOXICILLIN [Suspect]
     Indication: PRODUCT USED FOR UNKNOWN INDICATION
     Route: 065
  7. FOLIC ACID [Concomitant]
     Route: 065
  8. PRENATAL VITAMINS [Concomitant]
     Route: 065

REACTIONS (7)
  - Premature delivery [Recovered/Resolved]
  - Exposure during pregnancy [Recovered/Resolved]
  - Feeling abnormal [Unknown]
  - Activities of daily living impaired [Unknown]
  - Paraesthesia [Unknown]
  - Drug intolerance [Unknown]
  - Dizziness [Unknown]
